FAERS Safety Report 16063409 (Version 1)
Quarter: 2019Q1

REPORT INFORMATION
  Report Type: Spontaneous
  Country: CN (occurrence: CN)
  Receive Date: 20190312
  Receipt Date: 20190312
  Transmission Date: 20190418
  Serious: Yes (Other)
  Sender: FDA-Public Use
  Company Number: CN-BAXTER-2019BAX004712

PATIENT
  Age: 57 Year
  Sex: Female
  Weight: 60 kg

DRUGS (4)
  1. ENDOXAN [Suspect]
     Active Substance: CYCLOPHOSPHAMIDE
     Indication: BREAST CANCER
     Dosage: NORMAL SALINE 50ML + CYCLOPHOSPHAMIDE INJECTION 0.9G QD IVGTT
     Route: 041
     Dates: start: 20190215, end: 20190215
  2. 0.9% SODIUM CHLORIDE INJECTION [Suspect]
     Active Substance: SODIUM CHLORIDE
     Dosage: DOSAGE FORM: INJECTION, DOCETAXEL INJECTION 120MG + 0.9% SODIUM CHLORIDE INJECTION 250ML QD IVGTT
     Route: 041
     Dates: start: 20190215, end: 20190215
  3. AISU [DOCETAXEL] [Suspect]
     Active Substance: DOCETAXEL
     Indication: BREAST CANCER
     Dosage: DOCETAXEL INJECTION 120MG + 0.9% SODIUM CHLORIDE INJECTION 250ML QD IVGTT
     Route: 041
     Dates: start: 20190215, end: 20190215
  4. 0.9% SODIUM CHLORIDE INJECTION [Suspect]
     Active Substance: SODIUM CHLORIDE
     Indication: MEDICATION DILUTION
     Dosage: 0.9% SODIUM CHLORIDE 50ML + CYCLOPHOSPHAMIDE INJECTION 0.9G QD IVGTT
     Route: 041
     Dates: start: 20190215, end: 20190215

REACTIONS (1)
  - Bone marrow failure [Recovered/Resolved]

NARRATIVE: CASE EVENT DATE: 20190221
